FAERS Safety Report 18106864 (Version 4)
Quarter: 2020Q4

REPORT INFORMATION
  Report Type: Spontaneous
  Country: US (occurrence: US)
  Receive Date: 20200804
  Receipt Date: 20201006
  Transmission Date: 20210113
  Serious: No
  Sender: FDA-Public Use
  Company Number: US-BIOGEN-2020BI00906144

PATIENT
  Age: 54 Year
  Sex: Female

DRUGS (1)
  1. TYSABRI [Suspect]
     Active Substance: NATALIZUMAB
     Indication: MULTIPLE SCLEROSIS
     Route: 042
     Dates: start: 20190726

REACTIONS (4)
  - Product dose omission issue [Unknown]
  - Poor venous access [Unknown]
  - Vein disorder [Unknown]
  - Prescribed underdose [Unknown]

NARRATIVE: CASE EVENT DATE: 202007
